FAERS Safety Report 16569088 (Version 1)
Quarter: 2019Q3

REPORT INFORMATION
  Report Type: Spontaneous
  Country: US (occurrence: US)
  Receive Date: 20190713
  Receipt Date: 20190713
  Transmission Date: 20191004
  Serious: Yes (Other)
  Sender: FDA-Public Use
  Company Number: PHEH2019US028248

PATIENT
  Age: 58 Year
  Sex: Female

DRUGS (9)
  1. DEXAMETHASONE. [Suspect]
     Active Substance: DEXAMETHASONE
     Indication: PLASMA CELL MYELOMA
     Dosage: UNK
     Route: 065
     Dates: start: 2018
  2. POMALYST [Suspect]
     Active Substance: POMALIDOMIDE
     Dosage: 3 MG, UNK
     Route: 065
  3. POMALYST [Suspect]
     Active Substance: POMALIDOMIDE
     Dosage: 2 MG, UNK
     Route: 065
     Dates: start: 2018
  4. ELOTUZUMAB. [Suspect]
     Active Substance: ELOTUZUMAB
     Indication: PRODUCT USED FOR UNKNOWN INDICATION
     Dosage: UNK
     Route: 041
     Dates: start: 20181002, end: 20181113
  5. DEXAMETHASONE. [Suspect]
     Active Substance: DEXAMETHASONE
     Dosage: 3 MG, UNK
     Route: 065
     Dates: end: 201811
  6. POMALYST [Suspect]
     Active Substance: POMALIDOMIDE
     Indication: PRODUCT USED FOR UNKNOWN INDICATION
     Dosage: 4 MG, UNK
     Route: 065
     Dates: start: 2018
  7. POMALYST [Suspect]
     Active Substance: POMALIDOMIDE
     Dosage: 3 MG, UNK
     Route: 065
     Dates: start: 201808, end: 201811
  8. DARATUMUMAB [Suspect]
     Active Substance: DARATUMUMAB
     Indication: PRODUCT USED FOR UNKNOWN INDICATION
     Dosage: UNK
     Route: 041
     Dates: start: 20180501
  9. DARATUMUMAB [Suspect]
     Active Substance: DARATUMUMAB
     Dosage: UNK
     Route: 041
     Dates: start: 20180507

REACTIONS (13)
  - Myalgia [Unknown]
  - Fatigue [Unknown]
  - Respiratory tract infection [Unknown]
  - Pyrexia [Unknown]
  - Feeling abnormal [Unknown]
  - Nausea [Unknown]
  - Dyspnoea [Unknown]
  - Headache [Unknown]
  - Product use in unapproved indication [Unknown]
  - Vomiting [Unknown]
  - Arthralgia [Unknown]
  - Aphasia [Unknown]
  - Gastrointestinal disorder [Unknown]

NARRATIVE: CASE EVENT DATE: 20181120
